FAERS Safety Report 4811789-1 (Version None)
Quarter: 2005Q4

REPORT INFORMATION
  Report Type: 
  Country: None (occurrence: None)
  Receive Date: 20051027
  Receipt Date: 20051027
  Transmission Date: 20060501
  Serious: Yes (Hospitalization)
  Sender: FDA-Public Use
  Company Number: None

PATIENT
  Age: 83 Year
  Sex: Male
  Weight: 61.7 kg

DRUGS (16)
  1. ASPIRIN [Suspect]
     Indication: CEREBROVASCULAR ACCIDENT
     Dosage: 325MG +, 325MG DA,ORAL
     Route: 048
     Dates: start: 20050318
  2. CLOPDOGREL [Suspect]
  3. RISPERIDONE [Concomitant]
  4. SYNTHROID [Concomitant]
  5. DOCUSATE NA [Concomitant]
  6. METOPROLOL SUCCINATE [Concomitant]
  7. SIMVASTATIN [Concomitant]
  8. DARBEPOETIN ALFA [Concomitant]
  9. MULTI-VITAMIN [Concomitant]
  10. CITALOPRAM HYDROBROMIDE [Concomitant]
  11. FERROUS SULFATE TAB [Concomitant]
  12. TRAZODONE HCL [Concomitant]
  13. ASPIRIN [Concomitant]
  14. CLOPIDOGREL BISULFATE [Concomitant]
  15. ACETAMINOPHEN [Concomitant]
  16. BISACODYL [Concomitant]

REACTIONS (1)
  - GASTROINTESTINAL HAEMORRHAGE [None]
